FAERS Safety Report 13415357 (Version 2)
Quarter: 2017Q2

REPORT INFORMATION
  Report Type: Report from Study
  Country: DE (occurrence: FR)
  Receive Date: 20170406
  Receipt Date: 20170519
  Transmission Date: 20170830
  Serious: Yes (Hospitalization, Disabling, Other)
  Sender: FDA-Public Use
  Company Number: DE-INCYTE CORPORATION-2017IN002569

PATIENT

DRUGS (10)
  1. JAKAVI [Suspect]
     Active Substance: RUXOLITINIB
     Dosage: 10 MG, BID (2 DF DAILY)
     Route: 048
     Dates: start: 20161130
  2. PHLOROGLUCINOL [Concomitant]
     Active Substance: PHLOROGLUCINOL
     Indication: ABDOMINAL PAIN
     Dosage: 80 MG, PRN
     Route: 065
     Dates: start: 20160815, end: 201611
  3. JAKAVI [Suspect]
     Active Substance: RUXOLITINIB
     Indication: MYELOFIBROSIS
     Dosage: 20 MG, BID (2 DF DAILY)
     Route: 048
     Dates: start: 20160115, end: 20160719
  4. PANTOPRAZOLE [Concomitant]
     Active Substance: PANTOPRAZOLE
     Indication: GASTROOESOPHAGEAL REFLUX DISEASE
     Dosage: 40 MG, QD
     Route: 065
     Dates: start: 20120515
  5. ARANESP [Concomitant]
     Active Substance: DARBEPOETIN ALFA
     Indication: ANAEMIA PROPHYLAXIS
     Dosage: 300 UG, QW
     Route: 058
     Dates: start: 201610, end: 20161222
  6. LOVENOX [Concomitant]
     Active Substance: ENOXAPARIN SODIUM
     Indication: THROMBOSIS PROPHYLAXIS
     Dosage: 0.4 OT, QD
     Route: 058
     Dates: start: 201609, end: 201611
  7. LEVOTHYROX [Concomitant]
     Active Substance: LEVOTHYROXINE
     Indication: HYPOTHYROIDISM
     Dosage: 100 UG, QD
     Route: 065
     Dates: start: 20120110
  8. MOVICOL [Concomitant]
     Active Substance: POLYETHYLENE GLYCOL 3350\POTASSIUM CHLORIDE\SODIUM BICARBONATE\SODIUM CHLORIDE
     Indication: CONSTIPATION
     Dosage: 1 DF, QD
     Route: 065
     Dates: start: 20160915
  9. NEBIVOLOL. [Concomitant]
     Active Substance: NEBIVOLOL
     Indication: CORONARY ARTERY INSUFFICIENCY
     Dosage: 5 MG, QD
     Route: 065
     Dates: start: 200009
  10. VALACICLOVIR [Concomitant]
     Active Substance: VALACYCLOVIR HYDROCHLORIDE
     Indication: ORAL HERPES
     Dosage: 500 MG, QD
     Route: 065
     Dates: start: 20141114

REACTIONS (33)
  - Nodule [Unknown]
  - Intervertebral disc protrusion [Unknown]
  - Haemoglobin decreased [Unknown]
  - Hyperaesthesia [Not Recovered/Not Resolved]
  - Acute respiratory distress syndrome [Recovered/Resolved]
  - Chronic kidney disease [Recovered/Resolved]
  - Cardiac failure [Recovered/Resolved]
  - Bursitis [Unknown]
  - Blood urea increased [Unknown]
  - Anisocytosis [Unknown]
  - Lung disorder [Recovered/Resolved]
  - Clostridium colitis [Recovered/Resolved]
  - Enterococcal infection [Recovered/Resolved]
  - Blood pressure increased [Unknown]
  - Pancytopenia [Recovered/Resolved]
  - Musculoskeletal stiffness [Unknown]
  - Blood lactate dehydrogenase increased [Unknown]
  - General physical condition abnormal [Recovered/Resolved]
  - Serum ferritin increased [Unknown]
  - Platelet count decreased [Unknown]
  - Confusional state [Recovered/Resolved]
  - Arthropathy [Unknown]
  - Neck pain [Unknown]
  - Mucosal inflammation [Recovered/Resolved]
  - Pyelonephritis [Recovered/Resolved]
  - Diarrhoea [Unknown]
  - Haemoptysis [Recovered/Resolved]
  - Arthralgia [Recovering/Resolving]
  - Chondrocalcinosis [Recovering/Resolving]
  - Musculoskeletal pain [Unknown]
  - Osteoarthritis [Unknown]
  - Spinal pain [Unknown]
  - Blood albumin decreased [Unknown]

NARRATIVE: CASE EVENT DATE: 20160330
